FAERS Safety Report 25135488 (Version 2)
Quarter: 2025Q2

REPORT INFORMATION
  Report Type: Spontaneous
  Country: US (occurrence: US)
  Receive Date: 20250328
  Receipt Date: 20250603
  Transmission Date: 20250716
  Serious: Yes (Death, Other)
  Sender: CHATTEM
  Company Number: US-OPELLA-2025OHG008823

PATIENT
  Sex: Female

DRUGS (6)
  1. GOLD BOND ORIGINAL STRENGTH [Suspect]
     Active Substance: MENTHOL
     Indication: Product used for unknown indication
  2. alendronate (FOSAMAX) 70 mg tablet [Concomitant]
     Indication: Product used for unknown indication
     Dosage: TAKE 1 TABLET (70 MG TOTAL) BY MOUTH?EVERY 7 (SEVEN) DAYS TAKE WITH 8 OZ. WATER BEFORE OTHER FOOD OR
     Route: 048
     Dates: start: 20240213, end: 20250212
  3. pravastatin (PRAVACHOL) 10 mg tablet [Concomitant]
     Indication: Product used for unknown indication
     Dosage: TAKE 1 TABLET (10 MG TOTAL) BY MOUTH NIGHTLY
     Route: 048
     Dates: start: 20231116
  4. CALCIUM [Concomitant]
     Active Substance: CALCIUM
     Indication: Product used for unknown indication
     Route: 048
  5. estradiol (ESTRACE) 0.1 MG/GM vaginal cream [Concomitant]
     Indication: Product used for unknown indication
     Dosage: APPLY 1 GRAM PER URETHRA EVERY?OTHER DAY
     Route: 066
     Dates: start: 20231120
  6. Cranberry 500 MG Cap [Concomitant]
     Indication: Product used for unknown indication
     Route: 048

REACTIONS (3)
  - Death [Fatal]
  - Epithelioid mesothelioma [Unknown]
  - Exposure to chemical pollution [Unknown]
